FAERS Safety Report 10916521 (Version 2)
Quarter: 2015Q2

REPORT INFORMATION
  Report Type: Spontaneous
  Country: CA (occurrence: None)
  Receive Date: 20150311
  Receipt Date: 20150420
  Transmission Date: 20150821
  Serious: Yes (Hospitalization)
  Sender: FDA-Public Use
  Company Number: CA-2015VAL000188

PATIENT
  Age: 71 Year
  Sex: Male
  Weight: 120.5 kg

DRUGS (9)
  1. FUROSEMIDE. [Concomitant]
     Active Substance: FUROSEMIDE
  2. DILTIAZEM HCL [Suspect]
     Active Substance: DILTIAZEM HYDROCHLORIDE
     Indication: PULSE ABNORMAL
     Route: 048
     Dates: start: 20130410
  3. CANAKINUMAB VS PLACEBO () [Suspect]
     Active Substance: CANAKINUMAB
     Indication: CARDIOVASCULAR DISORDER
     Dosage: CODE NOT BROKEN, SUBCUTANEOUS?
     Route: 058
     Dates: start: 20121023
  4. ZYLOPRIM (ALLOPURINOL) [Concomitant]
  5. ISONIAZIDE (ISONIAZID) [Concomitant]
  6. EZETROL (EZETIMIBE) [Concomitant]
     Active Substance: EZETIMIBE
  7. WARFARIN [Concomitant]
     Active Substance: WARFARIN
  8. METOPROLOL TARTRATE (METOPROLOL TARTRATE) UNKNOWN [Suspect]
     Active Substance: METOPROLOL TARTRATE
     Indication: HYPERTENSION
     Dosage: 105 MG, QD (DIE), ORAL
     Route: 048
     Dates: start: 20130316
  9. ROSUVASTATIN [Concomitant]
     Active Substance: ROSUVASTATIN

REACTIONS (1)
  - Sinus node dysfunction [None]

NARRATIVE: CASE EVENT DATE: 20140930
